FAERS Safety Report 16967666 (Version 1)
Quarter: 2019Q4

REPORT INFORMATION
  Report Type: Spontaneous
  Country: US (occurrence: US)
  Receive Date: 20190910
  Receipt Date: 20190910
  Transmission Date: 20200122
  Serious: Yes (Other)
  Sender: FDA-Public Use
  Company Number: None

PATIENT
  Age: 53 Year
  Sex: Female
  Weight: 74.84 kg

DRUGS (2)
  1. OAW [Concomitant]
  2. LEVOTHYROXINE 0.175MG [Suspect]
     Active Substance: LEVOTHYROXINE
     Indication: HYPERLIPIDAEMIA
     Route: 048
     Dates: end: 20190910

REACTIONS (3)
  - Product substitution issue [None]
  - Reaction to excipient [None]
  - Malaise [None]

NARRATIVE: CASE EVENT DATE: 2009
